FAERS Safety Report 8834546 (Version 2)
Quarter: 2012Q4

REPORT INFORMATION
  Report Type: Report from Study
  Country: RU (occurrence: RU)
  Receive Date: 20121010
  Receipt Date: 20121126
  Transmission Date: 20130627
  Serious: Yes (Hospitalization)
  Sender: FDA-Public Use
  Company Number: RU-BAYER-2012-103086

PATIENT
  Sex: Male
  Weight: 20 kg

DRUGS (2)
  1. ANTIHEMOPHILIC FACTOR (RECOMBINANT), SUCROSE FORMULATED FS [Suspect]
     Indication: HEMOPHILIA A
     Dosage: UNK
     Dates: start: 20080324
  2. HAEMOCTIN SDH [Concomitant]
     Indication: HEMOPHILIA A

REACTIONS (1)
  - Haematoma [Recovered/Resolved]
